FAERS Safety Report 4488235-3 (Version None)
Quarter: 2004Q4

REPORT INFORMATION
  Report Type: 
  Country: None (occurrence: None)
  Receive Date: 20041025
  Receipt Date: 20041011
  Transmission Date: 20050328
  Serious: Yes (Disabling)
  Sender: FDA-Public Use
  Company Number: 200212999

PATIENT
  Age: 51 Year
  Sex: Female
  Weight: 48.9885 kg

DRUGS (2)
  1. BOTOX COSMETIC [Suspect]
     Indication: SKIN WRINKLING
     Dosage: 155 UNITS PRN IM
     Route: 030
     Dates: start: 20020618
  2. HYALAFORM [Concomitant]

REACTIONS (31)
  - AMYLOIDOSIS [None]
  - ANXIETY [None]
  - ASTHENIA [None]
  - BURNING SENSATION [None]
  - CHRONIC INFLAMMATORY DEMYELINATING POLYRADICULONEUROPATHY [None]
  - DYSPEPSIA [None]
  - DYSPHONIA [None]
  - GLOSSODYNIA [None]
  - HEAD LAG [None]
  - HYPOAESTHESIA [None]
  - IMPAIRED WORK ABILITY [None]
  - INSOMNIA [None]
  - INTERVERTEBRAL DISC DISORDER [None]
  - JAW DISORDER [None]
  - JOINT DISLOCATION [None]
  - LARYNGEAL OEDEMA [None]
  - MUSCLE STRAIN [None]
  - MUSCLE TIGHTNESS [None]
  - MUSCULAR WEAKNESS [None]
  - MUSCULOSKELETAL STIFFNESS [None]
  - NERVE INJURY [None]
  - ORAL DISCOMFORT [None]
  - PAIN [None]
  - PHARYNGOLARYNGEAL PAIN [None]
  - POLYNEUROPATHY [None]
  - POST VIRAL FATIGUE SYNDROME [None]
  - RADICULOPATHY [None]
  - SARCOIDOSIS [None]
  - THROAT IRRITATION [None]
  - VASCULITIS [None]
  - VIRAL INFECTION [None]
